FAERS Safety Report 19451806 (Version 1)
Quarter: 2021Q2

REPORT INFORMATION
  Report Type: Spontaneous
  Country: DE (occurrence: DE)
  Receive Date: 20210623
  Receipt Date: 20210623
  Transmission Date: 20210717
  Serious: Yes (Other)
  Sender: FDA-Public Use
  Company Number: DE-ROCHE-2849338

PATIENT
  Sex: Female

DRUGS (8)
  1. SOLU?MEDROL [Suspect]
     Active Substance: METHYLPREDNISOLONE SODIUM SUCCINATE
     Route: 065
     Dates: start: 202105
  2. PARACETAMOL [Suspect]
     Active Substance: ACETAMINOPHEN
     Indication: PREMEDICATION
     Route: 065
     Dates: start: 2019
  3. TAVEGYL [Suspect]
     Active Substance: CLEMASTINE FUMARATE
     Indication: PREMEDICATION
     Route: 065
     Dates: start: 2019
  4. PARACETAMOL [Suspect]
     Active Substance: ACETAMINOPHEN
     Route: 065
     Dates: start: 202105
  5. OCREVUS [Suspect]
     Active Substance: OCRELIZUMAB
     Indication: PRODUCT USED FOR UNKNOWN INDICATION
     Route: 042
     Dates: start: 2019
  6. TAVEGYL [Suspect]
     Active Substance: CLEMASTINE FUMARATE
     Route: 065
     Dates: start: 202105
  7. SOLU?MEDROL [Suspect]
     Active Substance: METHYLPREDNISOLONE SODIUM SUCCINATE
     Indication: PREMEDICATION
     Route: 065
     Dates: start: 2019
  8. OCREVUS [Suspect]
     Active Substance: OCRELIZUMAB
     Dosage: SIXTH INFUSION
     Route: 042
     Dates: start: 202105

REACTIONS (4)
  - Flatulence [Unknown]
  - Angioedema [Unknown]
  - Type IV hypersensitivity reaction [Unknown]
  - Fatigue [Unknown]

NARRATIVE: CASE EVENT DATE: 202105
